FAERS Safety Report 12171532 (Version 5)
Quarter: 2017Q3

REPORT INFORMATION
  Report Type: Spontaneous
  Country: GB (occurrence: GB)
  Receive Date: 20160311
  Receipt Date: 20170705
  Transmission Date: 20171127
  Serious: Yes (Other)
  Sender: FDA-Public Use
  Company Number: GB-JNJFOC-20160123309

PATIENT
  Sex: Female

DRUGS (2)
  1. SIMPONI [Suspect]
     Active Substance: GOLIMUMAB
     Indication: ANKYLOSING SPONDYLITIS
     Route: 058
     Dates: start: 20160226
  2. SIMPONI [Suspect]
     Active Substance: GOLIMUMAB
     Indication: ANKYLOSING SPONDYLITIS
     Route: 058

REACTIONS (11)
  - Back pain [Not Recovered/Not Resolved]
  - Device malfunction [Unknown]
  - Musculoskeletal stiffness [Unknown]
  - Crohn^s disease [Unknown]
  - Pain in extremity [Unknown]
  - Underdose [Unknown]
  - Accidental exposure to product [Unknown]
  - Pain [Unknown]
  - Headache [Unknown]
  - Fall [Unknown]
  - Malaise [Unknown]
